FAERS Safety Report 12661193 (Version 1)
Quarter: 2016Q3

REPORT INFORMATION
  Report Type: Spontaneous
  Country: JP (occurrence: JP)
  Receive Date: 20160817
  Receipt Date: 20160817
  Transmission Date: 20161109
  Serious: Yes (Hospitalization)
  Sender: FDA-Public Use
  Company Number: JP-PFIZER INC-2016372530

PATIENT
  Age: 73 Year
  Sex: Male

DRUGS (2)
  1. UFT [Suspect]
     Active Substance: TEGAFUR\URACIL
     Indication: CHEMOTHERAPY
     Dosage: UNK
  2. LEUCOVORIN. [Suspect]
     Active Substance: LEUCOVORIN
     Indication: CHEMOTHERAPY
     Dosage: UNK
     Route: 048

REACTIONS (1)
  - Venoocclusive liver disease [Recovered/Resolved]
